FAERS Safety Report 4783215-2 (Version None)
Quarter: 2005Q3

REPORT INFORMATION
  Report Type: 
  Country: None (occurrence: None)
  Receive Date: 20050928
  Receipt Date: 20050928
  Transmission Date: 20060218
  Serious: Yes (Hospitalization)
  Sender: FDA-Public Use
  Company Number: None

PATIENT
  Age: 55 Year
  Sex: Female
  Weight: 91.8 kg

DRUGS (1)
  1. TOPAMAX [Suspect]
     Indication: DRUG DISPENSING ERROR
     Dosage: 300MG ONCE PO
     Route: 048
     Dates: start: 20050613, end: 20050613

REACTIONS (14)
  - CHEST PAIN [None]
  - DIZZINESS [None]
  - DRUG DISPENSING ERROR [None]
  - DYSPNOEA [None]
  - FEELING ABNORMAL [None]
  - HEMIPARESIS [None]
  - LOSS OF CONSCIOUSNESS [None]
  - MEDICATION ERROR [None]
  - MUSCLE SPASMS [None]
  - SENSORY DISTURBANCE [None]
  - SYNCOPE [None]
  - TRANSIENT ISCHAEMIC ATTACK [None]
  - TREMOR [None]
  - VISION BLURRED [None]
